FAERS Safety Report 7953498-6 (Version None)
Quarter: 2011Q4

REPORT INFORMATION
  Report Type: 
  Country: None (occurrence: None)
  Receive Date: 20111202
  Receipt Date: 20111130
  Transmission Date: 20120403
  Serious: Yes (Other)
  Sender: FDA-Public Use
  Company Number: US-PFIZER INC-2011280989

PATIENT
  Sex: Female
  Weight: 58.957 kg

DRUGS (6)
  1. ACETAMINOPHEN [Concomitant]
     Indication: OSTEOARTHRITIS
     Dosage: UNK
  2. LIPITOR [Suspect]
     Dosage: 5 MG, 1X/DAY
     Dates: end: 20100101
  3. NAPROXEN (ALEVE) [Concomitant]
     Indication: OSTEOARTHRITIS
     Dosage: 2 TABLETS, DAILY
  4. LIPITOR [Suspect]
     Dosage: 5 MG, UNK
  5. LIPITOR [Suspect]
     Indication: LOW DENSITY LIPOPROTEIN INCREASED
     Dosage: 10 MG, UNK
     Route: 048
  6. ZETIA [Concomitant]
     Indication: LOW DENSITY LIPOPROTEIN INCREASED
     Dosage: UNK

REACTIONS (10)
  - MYALGIA [None]
  - GENERAL PHYSICAL CONDITION ABNORMAL [None]
  - RASH [None]
  - PRURITUS [None]
  - PAIN IN EXTREMITY [None]
  - DRUG INTOLERANCE [None]
  - HERPES ZOSTER [None]
  - INFLUENZA LIKE ILLNESS [None]
  - URTICARIA [None]
  - INSOMNIA [None]
